FAERS Safety Report 17038277 (Version 1)
Quarter: 2019Q4

REPORT INFORMATION
  Report Type: Report from Study
  Country: US (occurrence: US)
  Receive Date: 20191115
  Receipt Date: 20191115
  Transmission Date: 20200122
  Serious: Yes (Other)
  Sender: FDA-Public Use
  Company Number: US-JNJFOC-20191113183

PATIENT
  Sex: Female

DRUGS (28)
  1. PRAMIPEXOLE. [Concomitant]
     Active Substance: PRAMIPEXOLE
  2. BUSPAR [Concomitant]
     Active Substance: BUSPIRONE HYDROCHLORIDE
     Dosage: UNK
  3. GAS RELIEF [Concomitant]
     Active Substance: DIMETHICONE
     Dosage: UNK
  4. RANITIDINE. [Concomitant]
     Active Substance: RANITIDINE
  5. METOPROLOL SUCCINATE. [Concomitant]
     Active Substance: METOPROLOL SUCCINATE
  6. I-VITE [Concomitant]
  7. IMBRUVICA [Suspect]
     Active Substance: IBRUTINIB
     Indication: CHRONIC LYMPHOCYTIC LEUKAEMIA
     Dosage: 420 MG, QD
     Route: 048
     Dates: start: 20180525
  8. MECLIZINE [Concomitant]
     Active Substance: MECLIZINE HYDROCHLORIDE
  9. TRAZODONE [Concomitant]
     Active Substance: TRAZODONE HYDROCHLORIDE
  10. NORCO [Concomitant]
     Active Substance: ACETAMINOPHEN\HYDROCODONE BITARTRATE
  11. IBRUTINIB [Suspect]
     Active Substance: IBRUTINIB
     Indication: CHRONIC LYMPHOCYTIC LEUKAEMIA
     Dosage: 420 MG, QD
     Route: 048
     Dates: start: 20180525
  12. IBRUTINIB [Suspect]
     Active Substance: IBRUTINIB
     Dosage: 420 MG, QD
     Route: 048
     Dates: start: 20180525
  13. FUROSEMIDE. [Concomitant]
     Active Substance: FUROSEMIDE
  14. CYMBALTA [Concomitant]
     Active Substance: DULOXETINE HYDROCHLORIDE
  15. CALCIUM [Concomitant]
     Active Substance: CALCIUM
  16. TYLENOL [Concomitant]
     Active Substance: ACETAMINOPHEN
  17. WARFARIN [Concomitant]
     Active Substance: WARFARIN
  18. IMBRUVICA [Suspect]
     Active Substance: IBRUTINIB
     Indication: CHRONIC LYMPHOCYTIC LEUKAEMIA
     Dosage: 420 MG, QD
     Route: 048
     Dates: start: 20170406
  19. FLUTICASON [Concomitant]
     Active Substance: FLUTICASONE
  20. CORICIDIN                          /00070002/ [Concomitant]
  21. KLOR-CON [Concomitant]
     Active Substance: POTASSIUM CHLORIDE
  22. LOSARTAN. [Concomitant]
     Active Substance: LOSARTAN
  23. PRAVASTATIN. [Concomitant]
     Active Substance: PRAVASTATIN
  24. CHLORPHENIRAMINE                   /00072501/ [Concomitant]
     Active Substance: CHLORPHENIRAMINE
  25. OMEPRAZOLE. [Concomitant]
     Active Substance: OMEPRAZOLE
  26. SYNTHROID [Concomitant]
     Active Substance: LEVOTHYROXINE SODIUM
  27. ASPIRIN                            /00002701/ [Concomitant]
     Active Substance: ASPIRIN
  28. CLOBETASOL [Concomitant]
     Active Substance: CLOBETASOL

REACTIONS (7)
  - Fall [Recovering/Resolving]
  - Contusion [Unknown]
  - Sinusitis [Recovering/Resolving]
  - Head injury [Recovering/Resolving]
  - Abdominal pain upper [Unknown]
  - Balance disorder [Recovering/Resolving]
  - Diarrhoea [Unknown]
